FAERS Safety Report 4600742-9 (Version None)
Quarter: 2005Q1

REPORT INFORMATION
  Report Type: 
  Country: None (occurrence: None)
  Receive Date: 20050307
  Receipt Date: 20050225
  Transmission Date: 20050727
  Serious: Yes (Disabling)
  Sender: FDA-Public Use
  Company Number: GB-MERCK-0502GBR00230

PATIENT
  Sex: Female

DRUGS (3)
  1. FOSAMAX [Suspect]
     Route: 048
  2. FOSAMAX [Suspect]
     Route: 048
     Dates: start: 20050201, end: 20050201
  3. . [Concomitant]

REACTIONS (4)
  - BURNING SENSATION [None]
  - OESOPHAGEAL PAIN [None]
  - ORAL DISCOMFORT [None]
  - OVERDOSE [None]
